FAERS Safety Report 12004365 (Version 1)
Quarter: 2016Q1

REPORT INFORMATION
  Report Type: Report from Study
  Country: US (occurrence: US)
  Receive Date: 20160204
  Receipt Date: 20160204
  Transmission Date: 20160526
  Serious: No
  Sender: FDA-Public Use
  Company Number: US-ABBVIE-15K-163-1436339-00

PATIENT
  Age: 50 Year
  Sex: Female

DRUGS (3)
  1. HUMIRA [Suspect]
     Active Substance: ADALIMUMAB
     Indication: RHEUMATOID ARTHRITIS
     Dosage: FIRST INJECTION
     Route: 065
     Dates: start: 20150605, end: 20150605
  2. HUMIRA [Suspect]
     Active Substance: ADALIMUMAB
     Dosage: THIRD INJECTION
     Route: 065
     Dates: start: 20150708, end: 20150708
  3. HUMIRA [Suspect]
     Active Substance: ADALIMUMAB
     Dosage: SECOND INJECTION
     Route: 065
     Dates: start: 20150622, end: 20150622

REACTIONS (4)
  - Inappropriate schedule of drug administration [Recovering/Resolving]
  - Drug dose omission [Unknown]
  - Hypersensitivity [Recovering/Resolving]
  - Flushing [Recovering/Resolving]

NARRATIVE: CASE EVENT DATE: 20150622
